FAERS Safety Report 6591025-9 (Version None)
Quarter: 2010Q1

REPORT INFORMATION
  Report Type: 
  Country: None (occurrence: None)
  Receive Date: 20100219
  Receipt Date: 20100209
  Transmission Date: 20100710
  Serious: Yes (Life-Threatening, Hospitalization, Disabling)
  Sender: FDA-Public Use
  Company Number: JP-GENZYME-POMP-1000262

PATIENT
  Sex: Male
  Weight: 35 kg

DRUGS (28)
  1. MYOZYME [Suspect]
     Indication: GLYCOGEN STORAGE DISEASE TYPE II
     Dosage: 750 MG, UNK
  2. MYOZYME [Suspect]
     Dosage: 650 MG, Q2W
     Route: 042
     Dates: start: 20061211
  3. CARBOCISTEINE [Concomitant]
     Indication: GLYCOGEN STORAGE DISEASE TYPE II
     Dosage: 500 MG, TID
     Route: 048
     Dates: start: 20070515
  4. FURSULTIAMINE [Concomitant]
     Indication: GLYCOGEN STORAGE DISEASE TYPE II
     Dosage: 25 MG, TID
     Route: 048
     Dates: start: 20070903
  5. KAKKON-TO [Concomitant]
     Indication: GLYCOGEN STORAGE DISEASE TYPE II
     Dosage: 2.5 G, QD
     Route: 048
     Dates: start: 20070921
  6. BACTERIA NOS [Concomitant]
     Indication: PROPHYLAXIS AGAINST DIARRHOEA
     Dosage: 2 G, BID
     Route: 048
     Dates: start: 20080116
  7. OSELTAMIVIR PHOSPHATE [Concomitant]
     Indication: DRUG USE FOR UNKNOWN INDICATION
  8. ZOLPIDEM TARTRATE [Concomitant]
     Indication: INSOMNIA
  9. ESTAZOLAM [Concomitant]
     Indication: INSOMNIA
  10. CHLORPHENIRAMINE MALEATE [Concomitant]
     Indication: RHINITIS ALLERGIC
  11. CETIRIZINE HCL [Concomitant]
     Indication: RHINITIS ALLERGIC
  12. EPINASTINE HYDROCHLORIDE [Concomitant]
     Indication: RHINITIS ALLERGIC
  13. DOMPERIDONE [Concomitant]
     Indication: NAUSEA
  14. CEFCAPENE PIVOXIL [Concomitant]
     Indication: PNEUMOTHORAX
  15. PANTETHINE [Concomitant]
     Indication: GASTROINTESTINAL DISORDER
  16. SODIUM PICOSULFATE [Concomitant]
     Indication: GASTROINTESTINAL DISORDER
  17. MAGNESIUM OXIDE [Concomitant]
     Indication: GASTROINTESTINAL DISORDER
  18. CLARITHROMYCIN [Concomitant]
     Indication: BRONCHITIS
  19. CETRAXATE HYDROCHLORIDE [Concomitant]
     Indication: GASTROINTESTINAL DISORDER
  20. MOSAPRIDE CITRATE [Concomitant]
     Indication: GASTROINTESTINAL DISORDER
  21. DEXAMETHASONE [Concomitant]
     Indication: MALNUTRITION
  22. LOXOPROFEN SODIUM [Concomitant]
     Indication: PROCEDURAL PAIN
  23. CARBOCISTEINE [Concomitant]
     Indication: BRONCHITIS
  24. BROMHEXINE HYDROCHLORIDE [Concomitant]
     Indication: BRONCHITIS
  25. AMBROXOL HYDROCHLORIDE [Concomitant]
     Indication: BRONCHITIS
  26. FAMOTIDINE [Concomitant]
     Indication: BRONCHITIS
  27. CEFDITOREN PIVOXIL [Concomitant]
     Indication: BRONCHITIS
  28. PROCAINE HYDROCHLORIDE INJ [Concomitant]
     Indication: PNEUMOTHORAX

REACTIONS (11)
  - BRONCHITIS CHRONIC [None]
  - GASTROENTERITIS [None]
  - GASTROINTESTINAL DISORDER [None]
  - INFUSION RELATED REACTION [None]
  - MALNUTRITION [None]
  - PNEUMOTHORAX [None]
  - POST PROCEDURAL COMPLICATION [None]
  - PROCEDURAL PAIN [None]
  - PYOTHORAX [None]
  - RHINITIS ALLERGIC [None]
  - URTICARIA [None]
